FAERS Safety Report 4377369-X (Version None)
Quarter: 2004Q2

REPORT INFORMATION
  Report Type: 
  Country: None (occurrence: None)
  Receive Date: 20040615
  Receipt Date: 20040526
  Transmission Date: 20050107
  Serious: Yes (Death, Other)
  Sender: FDA-Public Use
  Company Number: 200414121US

PATIENT
  Sex: Female
  Weight: 50 kg

DRUGS (6)
  1. LOVENOX [Suspect]
     Indication: HIP SURGERY
     Route: 058
     Dates: start: 20040506, end: 20040518
  2. LOVENOX [Suspect]
     Indication: POSTOPERATIVE CARE
     Route: 058
     Dates: start: 20040506, end: 20040518
  3. LOVENOX [Suspect]
     Indication: PROPHYLAXIS
     Route: 058
     Dates: start: 20040506, end: 20040518
  4. CORTICOSTEROIDS [Concomitant]
     Dosage: DOSE: NOT PROVIDED
  5. LEVAQUIN [Concomitant]
     Dosage: DOSE: NOT PROVIDED
  6. PROTON PUMP INHIBITOR [Concomitant]
     Dosage: DOSE: NOT PROVIDED

REACTIONS (10)
  - ABDOMINAL PAIN UPPER [None]
  - DEATH [None]
  - DIPLEGIA [None]
  - HAEMARTHROSIS [None]
  - HAEMATOCRIT DECREASED [None]
  - HAEMOGLOBIN DECREASED [None]
  - ILEUS [None]
  - MONOPLEGIA [None]
  - SPINAL CORD COMPRESSION [None]
  - SPINAL CORD HAEMORRHAGE [None]
